FAERS Safety Report 15537594 (Version 2)
Quarter: 2018Q4

REPORT INFORMATION
  Report Type: Other
  Country: US (occurrence: US)
  Receive Date: 20181022
  Receipt Date: 20181105
  Transmission Date: 20190205
  Serious: No
  Sender: FDA-Public Use
  Company Number: US-SUNOVION-2018SUN004047

PATIENT
  Sex: Female

DRUGS (3)
  1. BUDESONIDE. [Concomitant]
     Active Substance: BUDESONIDE
  2. BROVANA [Suspect]
     Active Substance: ARFORMOTEROL TARTRATE
     Route: 048
  3. ADVAIR HFA [Concomitant]
     Active Substance: FLUTICASONE PROPIONATE\SALMETEROL XINAFOATE

REACTIONS (7)
  - Anxiety [Unknown]
  - Dizziness [Unknown]
  - Muscle spasms [Unknown]
  - Pollakiuria [Unknown]
  - Dry mouth [Unknown]
  - Dysphonia [Unknown]
  - Nervousness [Unknown]
